FAERS Safety Report 13694688 (Version 1)
Quarter: 2017Q2

REPORT INFORMATION
  Report Type: Report from Study
  Country: US (occurrence: US)
  Receive Date: 20170627
  Receipt Date: 20170627
  Transmission Date: 20170830
  Serious: Yes (Other)
  Sender: FDA-Public Use
  Company Number: US-PFIZER INC-2017278915

PATIENT

DRUGS (2)
  1. SIROLIMUS. [Suspect]
     Active Substance: SIROLIMUS
     Indication: ORGAN TRANSPLANT
  2. SIROLIMUS. [Suspect]
     Active Substance: SIROLIMUS
     Indication: STEM CELL TRANSPLANT
     Dosage: UNK

REACTIONS (1)
  - Thrombotic microangiopathy [Unknown]
